FAERS Safety Report 7678426-2 (Version None)
Quarter: 2011Q3

REPORT INFORMATION
  Report Type: 
  Country: None (occurrence: None)
  Receive Date: 20110811
  Receipt Date: 20110723
  Transmission Date: 20111222
  Serious: Yes (Other)
  Sender: FDA-Public Use
  Company Number: US-BAYER-2011-069946

PATIENT
  Age: 42 Year
  Sex: Male
  Weight: 93 kg

DRUGS (3)
  1. NAPROXEN (ALEVE) [Suspect]
     Indication: HANGOVER
     Dosage: 440 MG, UNK
     Route: 048
  2. ANTIACID [Suspect]
     Indication: HANGOVER
     Dosage: 2 DF, UNK
  3. ASPIRIN [Suspect]
     Indication: HANGOVER
     Dosage: 2 DF, UNK

REACTIONS (2)
  - GASTRIC HAEMORRHAGE [None]
  - MYALGIA [None]
